FAERS Safety Report 20534260 (Version 4)
Quarter: 2022Q2

REPORT INFORMATION
  Report Type: Spontaneous
  Country: BE (occurrence: BE)
  Receive Date: 20220301
  Receipt Date: 20220401
  Transmission Date: 20220721
  Serious: Yes (Hospitalization, Other)
  Sender: FDA-Public Use
  Company Number: BE-Accord-238840

PATIENT
  Age: 72 Year
  Sex: Female

DRUGS (14)
  1. FLUCLOXACILLIN [Interacting]
     Active Substance: FLUCLOXACILLIN
     Indication: Staphylococcal infection
     Dosage: 1 GRAM(DOSE: 6 X 1G)
     Route: 065
  2. FLUCLOXACILLIN [Interacting]
     Active Substance: FLUCLOXACILLIN
     Dosage: 2 GRAM(DOSE: 6 X 2G )
     Route: 065
  3. FLUCLOXACILLIN [Interacting]
     Active Substance: FLUCLOXACILLIN
     Dosage: 1 GRAM(DOSE: 6 X 1G)
     Route: 042
     Dates: start: 202012
  4. VFEND [Interacting]
     Active Substance: VORICONAZOLE
     Indication: Bronchopulmonary aspergillosis
     Dosage: 8 MILLIGRAM/KILOGRAM, ONCE A DAY (4 MILLIGRAM/KILOGRAM, BID,  MAINTENANCE DOSE)
     Route: 065
  5. VFEND [Interacting]
     Active Substance: VORICONAZOLE
     Dosage: 12 MILLIGRAM, ONCE A DAY
     Route: 065
  6. VFEND [Interacting]
     Active Substance: VORICONAZOLE
     Dosage: 8 MILLIGRAM, ONCE A DAY(4 MILLIGRAM/KILOGRAM, BID,  MAINTENANCE DOSE )
     Route: 065
  7. VFEND [Interacting]
     Active Substance: VORICONAZOLE
     Dosage: UNK, ONCE A DAY
     Route: 065
  8. VFEND [Interacting]
     Active Substance: VORICONAZOLE
     Dosage: 16 MILLIGRAM/KILOGRAM, ONCE A DAY (8 MILLIGRAM/KILOGRAM, TWO TIMES A DAY (ON DAY 18)
     Route: 065
  9. VFEND [Interacting]
     Active Substance: VORICONAZOLE
     Dosage: 12 MILLIGRAM/KILOGRAM, ONCE A DAY (6 MILLIGRAM/KILOGRAM, BID, CLASSIC LOADING DOSE)
     Route: 042
     Dates: start: 20201208
  10. VFEND [Interacting]
     Active Substance: VORICONAZOLE
     Dosage: 8 MILLIGRAM/KILOGRAM, TWO TIMES A DAY
     Route: 042
     Dates: start: 20201215
  11. AMOXICILLIN\CLAVULANIC ACID [Concomitant]
     Active Substance: AMOXICILLIN\CLAVULANIC ACID
     Indication: Product used for unknown indication
     Dosage: UNK
     Route: 065
  12. CEFTRIAXONE [Concomitant]
     Active Substance: CEFTRIAXONE
     Indication: Product used for unknown indication
     Dosage: INITIATED ON DAY 6
     Route: 065
  13. FLUCONAZOLE [Concomitant]
     Active Substance: FLUCONAZOLE
     Indication: Product used for unknown indication
     Dosage: ON DAY 9
     Route: 065
  14. FLUCONAZOLE [Concomitant]
     Active Substance: FLUCONAZOLE
     Dosage: 6 MILLIGRAM/KILOGRAM, TWO TIMES A DAY
     Route: 065

REACTIONS (2)
  - Drug interaction [Recovered/Resolved]
  - Drug level decreased [Recovering/Resolving]
